FAERS Safety Report 12626642 (Version 1)
Quarter: 2016Q3

REPORT INFORMATION
  Report Type: Spontaneous
  Country: US (occurrence: US)
  Receive Date: 20160805
  Receipt Date: 20160805
  Transmission Date: 20161109
  Serious: Yes (Other)
  Sender: FDA-Public Use
  Company Number: US-PFIZER INC-2014363426

PATIENT
  Sex: Female

DRUGS (1)
  1. EPIPEN [Suspect]
     Active Substance: EPINEPHRINE
     Dosage: UNK

REACTIONS (4)
  - Injection site hypoaesthesia [Not Recovered/Not Resolved]
  - Injection site pallor [Not Recovered/Not Resolved]
  - Injection site ischaemia [Not Recovered/Not Resolved]
  - Accidental exposure to product [Not Recovered/Not Resolved]
